FAERS Safety Report 5186117-5 (Version None)
Quarter: 2006Q4

REPORT INFORMATION
  Report Type: 
  Country: None (occurrence: None)
  Receive Date: 20061220
  Receipt Date: 20061025
  Transmission Date: 20070319
  Serious: No
  Sender: FDA-Public Use
  Company Number: CHPA2006US08727

PATIENT
  Age: 49 Year
  Sex: Female
  Weight: 70.5 kg

DRUGS (3)
  1. NICODERM [Suspect]
     Route: 062
     Dates: start: 20060801
  2. ATENOLOL [Concomitant]
  3. FUROSEMIDE [Concomitant]

REACTIONS (3)
  - INTENTIONAL DRUG MISUSE [None]
  - MIGRAINE [None]
  - NICOTINE DEPENDENCE [None]
